FAERS Safety Report 8020678-3 (Version None)
Quarter: 2012Q1

REPORT INFORMATION
  Report Type: 
  Country: None (occurrence: None)
  Receive Date: 20120103
  Receipt Date: 20111222
  Transmission Date: 20120608
  Serious: Yes (Other)
  Sender: FDA-Public Use
  Company Number: US-ASTRAZENECA-2011SE77926

PATIENT
  Age: 62 Year
  Sex: Female
  Weight: 38.1 kg

DRUGS (20)
  1. SCOPOLAMINE [Concomitant]
     Indication: SECRETION DISCHARGE
     Dosage: 4 DROPS
  2. PULMICORT [Suspect]
     Dosage: 0.50 MG/2 CC, ONE RESPULE EVERY 2 1/2 TO 3 HOURS
     Route: 055
  3. VITAMIN TAB [Concomitant]
  4. PREDNISONE TAB [Concomitant]
  5. PROMETHAZINE [Concomitant]
     Indication: VOMITING
  6. BENZONATATE [Concomitant]
  7. LORAZEPAM [Concomitant]
  8. PULMICORT [Suspect]
     Indication: CHRONIC OBSTRUCTIVE PULMONARY DISEASE
     Route: 055
  9. LORTAB [Concomitant]
  10. OMEPRAZOLE [Concomitant]
  11. METHADONE HCL [Concomitant]
  12. OXYGEN [Concomitant]
  13. CODEINE [Concomitant]
  14. CLONAZEPAM [Concomitant]
  15. ALBUTEROL [Concomitant]
  16. CITALOPRAM HYDROBROMIDE [Concomitant]
     Indication: DEPRESSION
  17. PULMICORT [Suspect]
     Dosage: 0.50 MG/2 CC, ONE RESPULE EVERY SIX HOURS
     Route: 055
  18. SENNA [Concomitant]
  19. PROMETHAZINE [Concomitant]
     Indication: NAUSEA
  20. GUAIFENESIN [Concomitant]

REACTIONS (6)
  - WEIGHT DECREASED [None]
  - DRUG DOSE OMISSION [None]
  - CIRCUMSTANCE OR INFORMATION CAPABLE OF LEADING TO MEDICATION ERROR [None]
  - DYSPNOEA [None]
  - DRUG PRESCRIBING ERROR [None]
  - MALAISE [None]
